FAERS Safety Report 7345252-3 (Version None)
Quarter: 2011Q1

REPORT INFORMATION
  Report Type: 
  Country: None (occurrence: None)
  Receive Date: 20110310
  Receipt Date: 20110228
  Transmission Date: 20110831
  Serious: Yes (Hospitalization)
  Sender: FDA-Public Use
  Company Number: US-ELI_LILLY_AND_COMPANY-US201103000182

PATIENT
  Sex: Female
  Weight: 65.306 kg

DRUGS (20)
  1. IRON [Concomitant]
     Dosage: 2 D/F, DAILY (1/D)
     Dates: start: 20061002
  2. AMBIEN [Concomitant]
     Indication: SLEEP DISORDER
  3. ANALGESICS [Concomitant]
     Dosage: UNK, DAILY (1/D)
  4. PROZAC [Suspect]
     Dosage: 20 MG, DAILY (1/D)
     Dates: start: 20000101
  5. TYLENOL [Concomitant]
     Dosage: 1 G, UNK
     Dates: start: 20101215
  6. LACTOBACILLUS ACIDOPHILUS [Concomitant]
     Dates: start: 20101123
  7. MICRONOR [Concomitant]
     Dates: start: 20101123
  8. CLARITIN [Concomitant]
     Dosage: 10 MG, UNK
     Dates: start: 20101215
  9. MULTIVITAMIN [Concomitant]
     Dates: start: 20101215
  10. BENADRYL [Concomitant]
     Dosage: 25 MG, EACH EVENING
  11. CALCIUM [Concomitant]
     Dosage: 1 D/F, DAILY (1/D)
     Dates: start: 20061002
  12. DHA [Concomitant]
     Dates: start: 20060602
  13. PREDNISONE [Concomitant]
     Dosage: 30 MG, DAILY (1/D)
  14. PREDNISONE [Concomitant]
     Dosage: 20 MG, DAILY (1/D)
  15. PRENATAL VITAMINS [Concomitant]
     Dates: start: 20061002
  16. LOVAZA [Concomitant]
     Dates: start: 20061002
  17. REMICADE [Concomitant]
     Indication: COLITIS ULCERATIVE
     Dosage: 400 MG, UNK
     Route: 042
     Dates: start: 20101201
  18. PREDNISONE [Concomitant]
     Dosage: 15 MG, DAILY (1/D)
     Dates: start: 20101227
  19. XANAX [Concomitant]
     Indication: PANIC ATTACK
     Dates: start: 20101219
  20. MINERALS NOS [Concomitant]
     Dates: start: 20061002

REACTIONS (4)
  - DRUG EXPOSURE DURING PREGNANCY [None]
  - PANIC ATTACK [None]
  - COLITIS ULCERATIVE [None]
  - INFLUENZA LIKE ILLNESS [None]
